FAERS Safety Report 9240707 (Version 1)
Quarter: 2013Q1

REPORT INFORMATION
  Report Type: Spontaneous
  Country: US (occurrence: None)
  Receive Date: 20121120
  Receipt Date: 20121120
  Transmission Date: 20140127
  Serious: No
  Sender: FDA-Public Use
  Company Number: 1000037648

PATIENT
  Age: 51 Year
  Sex: Male

DRUGS (3)
  1. VIIBRYD (VILAZODONE) (10 MILLIGRAM, TABLETS) [Suspect]
     Indication: DEPRESSION
     Route: 048
     Dates: start: 20120804
  2. LISINOPRIL (LISINOPRIL) [Concomitant]
  3. VITAMINS [Concomitant]

REACTIONS (1)
  - Somnolence [None]
